FAERS Safety Report 15143505 (Version 1)
Quarter: 2018Q3

REPORT INFORMATION
  Report Type: Report from Study
  Country: US (occurrence: US)
  Receive Date: 20180713
  Receipt Date: 20180713
  Transmission Date: 20181010
  Serious: Yes (Other)
  Sender: FDA-Public Use
  Company Number: US-SHIRE-US201823264

PATIENT
  Age: 22 Year
  Sex: Female

DRUGS (1)
  1. NATPARA (PARATHYROID HORMONE) [Suspect]
     Active Substance: PARATHYROID HORMONE
     Indication: SENSORY PROCESSING DISORDER
     Dosage: 50 ?G, 1X/DAY:QD
     Route: 058
     Dates: start: 20180128

REACTIONS (5)
  - Tunnel vision [Unknown]
  - Impaired driving ability [Unknown]
  - Mobility decreased [Unknown]
  - Gait disturbance [Unknown]
  - Blood calcium decreased [Unknown]

NARRATIVE: CASE EVENT DATE: 20180620
